FAERS Safety Report 19614840 (Version 1)
Quarter: 2021Q3

REPORT INFORMATION
  Report Type: Spontaneous
  Country: US (occurrence: US)
  Receive Date: 20210727
  Receipt Date: 20210727
  Transmission Date: 20211014
  Serious: Yes (Other)
  Sender: FDA-Public Use
  Company Number: None

PATIENT
  Age: 70 Year
  Sex: Male
  Weight: 74.25 kg

DRUGS (2)
  1. LISINPRIL [Concomitant]
     Dates: start: 20210701
  2. ANORO [Suspect]
     Active Substance: UMECLIDINIUM BROMIDE\VILANTEROL TRIFENATATE
     Indication: ASTHMA
     Route: 055
     Dates: start: 20210102

REACTIONS (1)
  - Burning sensation [None]

NARRATIVE: CASE EVENT DATE: 20210709
